FAERS Safety Report 9318055 (Version 1)
Quarter: 2013Q2

REPORT INFORMATION
  Report Type: Spontaneous
  Country: US (occurrence: US)
  Receive Date: 20130530
  Receipt Date: 20130530
  Transmission Date: 20140414
  Serious: No
  Sender: FDA-Public Use
  Company Number: US-GLAXOSMITHKLINE-A1002510A

PATIENT
  Age: 93 Year
  Sex: Female

DRUGS (4)
  1. VENTOLIN [Suspect]
     Indication: CHRONIC OBSTRUCTIVE PULMONARY DISEASE
     Dosage: 2PUFF THREE TIMES PER DAY
     Route: 055
     Dates: start: 20121016
  2. THYROID [Concomitant]
  3. ANTIDEPRESSANT [Concomitant]
  4. SUPPLEMENT [Concomitant]

REACTIONS (3)
  - Drug ineffective [Recovered/Resolved]
  - Malaise [Unknown]
  - Gait disturbance [Unknown]
